FAERS Safety Report 12780190 (Version 1)
Quarter: 2016Q3

REPORT INFORMATION
  Report Type: Spontaneous
  Country: GB (occurrence: GB)
  Receive Date: 20160926
  Receipt Date: 20160926
  Transmission Date: 20161109
  Serious: Yes (Hospitalization)
  Sender: FDA-Public Use
  Company Number: GB-PFIZER INC-2016435533

PATIENT
  Age: 7 Year
  Sex: Female
  Weight: 40.4 kg

DRUGS (8)
  1. BEVACIZUMAB [Concomitant]
     Active Substance: BEVACIZUMAB
     Indication: ASTROCYTOMA, LOW GRADE
     Dates: start: 20160906
  2. IRINOTECAN HCL [Suspect]
     Active Substance: IRINOTECAN HYDROCHLORIDE
     Indication: ASTROCYTOMA, LOW GRADE
     Dosage: DOSE CAPPED AT WEIGHT AT 98TH CENTILE (33KG)
     Route: 042
     Dates: start: 20160906
  3. MELATONIN [Concomitant]
     Active Substance: MELATONIN
  4. HYDROCORTISONE. [Concomitant]
     Active Substance: HYDROCORTISONE
  5. MOVICOL [Concomitant]
     Active Substance: POLYETHYLENE GLYCOL 3350\POTASSIUM CHLORIDE\SODIUM BICARBONATE\SODIUM CHLORIDE
  6. VINBLASTINE [Concomitant]
     Active Substance: VINBLASTINE
     Indication: ASTROCYTOMA, LOW GRADE
     Dates: start: 201512, end: 201608
  7. MORPHINE [Concomitant]
     Active Substance: MORPHINE
  8. ONDANSETRON [Concomitant]
     Active Substance: ONDANSETRON

REACTIONS (4)
  - Abdominal pain [Recovered/Resolved]
  - Cholinergic syndrome [Recovered/Resolved]
  - Diarrhoea [Recovered/Resolved]
  - Hyperhidrosis [Recovered/Resolved]

NARRATIVE: CASE EVENT DATE: 20160906
